FAERS Safety Report 4390231-1 (Version None)
Quarter: 2004Q2

REPORT INFORMATION
  Report Type: 
  Country: None (occurrence: None)
  Receive Date: 20040630
  Receipt Date: 20040622
  Transmission Date: 20050107
  Serious: Yes (Life-Threatening, Hospitalization)
  Sender: FDA-Public Use
  Company Number: 2004220208US

PATIENT
  Sex: Female

DRUGS (1)
  1. CORTEF [Suspect]

REACTIONS (1)
  - CARDIAC ARREST [None]
